FAERS Safety Report 4948432-7 (Version None)
Quarter: 2006Q1

REPORT INFORMATION
  Report Type: 
  Country: None (occurrence: None)
  Receive Date: 20060201
  Receipt Date: 20051029
  Transmission Date: 20060701
  Serious: No
  Sender: FDA-Public Use
  Company Number: 2005PV004216

PATIENT
  Sex: Male

DRUGS (2)
  1. BYETTA [Suspect]
     Indication: DRUG USE FOR UNKNOWN INDICATION
     Dosage: 10 MCG; BID; SC ; 5 MCG; BID; SC
     Route: 058
     Dates: start: 20051021, end: 20051001
  2. BYETTA [Suspect]
     Indication: DRUG USE FOR UNKNOWN INDICATION
     Dosage: 10 MCG; BID; SC ; 5 MCG; BID; SC
     Route: 058
     Dates: start: 20051001

REACTIONS (5)
  - DIARRHOEA [None]
  - FLUID INTAKE REDUCED [None]
  - MUSCLE SPASMS [None]
  - NAUSEA [None]
  - WEIGHT DECREASED [None]
